FAERS Safety Report 23245460 (Version 1)
Quarter: 2023Q4

REPORT INFORMATION
  Report Type: Report from Study
  Country: DE (occurrence: None)
  Receive Date: 20231130
  Receipt Date: 20231130
  Transmission Date: 20240109
  Serious: Yes (Hospitalization)
  Sender: FDA-Public Use
  Company Number: DE-ROCHE-3464214

PATIENT
  Sex: Male
  Weight: 105.8 kg

DRUGS (2)
  1. RITUXIMAB [Suspect]
     Active Substance: RITUXIMAB
     Indication: Malignant lymphoid neoplasm
     Dosage: DATE OF LAST DOSE PRIOR TO SAE 03/MAY/2011
     Route: 041
     Dates: start: 20101019
  2. BENDAMUSTINE [Suspect]
     Active Substance: BENDAMUSTINE
     Indication: Malignant lymphoid neoplasm
     Dosage: DATE OF LAST DOSE PRIOR TO SAE 09/MAR/2011, DOSAGE FORM DF PLUS 2
     Route: 042
     Dates: start: 20101021

REACTIONS (1)
  - Cyst removal [Recovered/Resolved]

NARRATIVE: CASE EVENT DATE: 20120319
